FAERS Safety Report 21199088 (Version 3)
Quarter: 2023Q2

REPORT INFORMATION
  Report Type: Report from Study
  Country: DE (occurrence: None)
  Receive Date: 20220811
  Receipt Date: 20230627
  Transmission Date: 20230722
  Serious: Yes (Hospitalization)
  Sender: FDA-Public Use
  Company Number: DE-ROCHE-3148407

PATIENT
  Age: 41 Year
  Sex: Female
  Weight: 61 kg

DRUGS (10)
  1. BEVACIZUMAB [Suspect]
     Active Substance: BEVACIZUMAB
     Indication: Cervix cancer metastatic
     Route: 042
     Dates: start: 20201027, end: 20220525
  2. CISPLATIN [Suspect]
     Active Substance: CISPLATIN
     Indication: Cervix cancer metastatic
     Route: 042
     Dates: start: 20201027, end: 20210210
  3. PACLITAXEL [Suspect]
     Active Substance: PACLITAXEL
     Indication: Cervix cancer metastatic
     Route: 042
     Dates: start: 20201027, end: 20210210
  4. ESCITALOPRAM [Concomitant]
     Active Substance: ESCITALOPRAM OXALATE
     Indication: Depression
     Route: 048
     Dates: start: 2018, end: 202202
  5. TRAZODONE [Concomitant]
     Active Substance: TRAZODONE HYDROCHLORIDE
     Indication: Depression
     Route: 048
     Dates: start: 2018
  6. INDAPAMIDE [Concomitant]
     Active Substance: INDAPAMIDE
     Indication: Hypertension
     Route: 048
     Dates: start: 202104
  7. LERCANIDIPINE [Concomitant]
     Active Substance: LERCANIDIPINE
     Indication: Hypertension
     Route: 048
     Dates: start: 20210305
  8. PANTOPRAZOLE [Concomitant]
     Active Substance: PANTOPRAZOLE
     Indication: Gastrointestinal disorder prophylaxis
     Route: 048
     Dates: start: 20210802
  9. VENLAFAXINE [Concomitant]
     Active Substance: VENLAFAXINE HYDROCHLORIDE
     Indication: Depression
     Route: 048
     Dates: start: 202202
  10. ESTRADIOL [Concomitant]
     Active Substance: ESTRADIOL
     Indication: Hormone replacement therapy
     Dosage: 0.6 MG/G
     Route: 061
     Dates: start: 2019

REACTIONS (1)
  - Cholelithiasis [Recovered/Resolved]

NARRATIVE: CASE EVENT DATE: 20210701
